FAERS Safety Report 7793775-5 (Version None)
Quarter: 2011Q4

REPORT INFORMATION
  Report Type: 
  Country: None (occurrence: None)
  Receive Date: 20111003
  Receipt Date: 20110920
  Transmission Date: 20120403
  Serious: Yes (Hospitalization)
  Sender: FDA-Public Use
  Company Number: PHHY2011DE84148

PATIENT
  Age: 13 Year
  Sex: Male
  Weight: 46.6 kg

DRUGS (2)
  1. EXJADE [Concomitant]
     Indication: THALASSAEMIA BETA
     Dosage: 1500 MG, UNK
     Route: 048
     Dates: end: 20110317
  2. DESFERAL [Suspect]
     Indication: THALASSAEMIA BETA
     Dosage: UNK UKN, UNK
     Route: 042
     Dates: start: 20110318, end: 20110320

REACTIONS (6)
  - DELIRIUM [None]
  - MUSCLE RIGIDITY [None]
  - BLOOD CREATINE PHOSPHOKINASE INCREASED [None]
  - VOMITING [None]
  - BLOOD ALKALINE PHOSPHATASE INCREASED [None]
  - ENCEPHALOPATHY [None]
